FAERS Safety Report 15438928 (Version 1)
Quarter: 2018Q3

REPORT INFORMATION
  Report Type: Spontaneous
  Country: US (occurrence: US)
  Receive Date: 20180924
  Receipt Date: 20180924
  Transmission Date: 20181010
  Serious: Yes (Hospitalization)
  Sender: FDA-Public Use
  Company Number: None

PATIENT
  Age: 49 Year
  Sex: Female

DRUGS (1)
  1. OXTELLAR XR [Suspect]
     Active Substance: OXCARBAZEPINE

REACTIONS (12)
  - Tremor [None]
  - Nausea [None]
  - Insomnia [None]
  - Dizziness [None]
  - Diplopia [None]
  - Headache [None]
  - Gait disturbance [None]
  - Suicidal ideation [None]
  - Panic attack [None]
  - Aggression [None]
  - Vomiting [None]
  - Anxiety [None]

NARRATIVE: CASE EVENT DATE: 20180915
